FAERS Safety Report 4706011-0 (Version None)
Quarter: 2005Q2

REPORT INFORMATION
  Report Type: 
  Country: None (occurrence: None)
  Receive Date: 20050629
  Receipt Date: 20050518
  Transmission Date: 20051028
  Serious: Yes (Death)
  Sender: FDA-Public Use
  Company Number: 03P-163-0240260-00

PATIENT
  Age: 53 Year
  Sex: Male

DRUGS (8)
  1. HUMIRA [Suspect]
     Indication: RHEUMATOID ARTHRITIS
     Dosage: 40 MG, 1 IN 2 WK, SUBCUTANEOUS
     Route: 058
     Dates: start: 20030401, end: 20030101
  2. PREDNISONE TAB [Concomitant]
  3. FUROSEMIDE [Concomitant]
  4. ASPIRIN [Concomitant]
  5. RAMIPRIL [Concomitant]
  6. ISOSORBIDE MONONITRATE [Concomitant]
  7. FOLIC ACID [Concomitant]
  8. METHOTREXATE SODIUM [Concomitant]

REACTIONS (1)
  - DEATH [None]
